FAERS Safety Report 9384833 (Version 2)
Quarter: 2013Q3

REPORT INFORMATION
  Report Type: Spontaneous
  Country: US (occurrence: US)
  Receive Date: 20130705
  Receipt Date: 20130730
  Transmission Date: 20140515
  Serious: No
  Sender: FDA-Public Use
  Company Number: US-PFIZER INC-2013195366

PATIENT
  Age: 72 Year
  Sex: Male
  Weight: 87.98 kg

DRUGS (13)
  1. XALKORI [Suspect]
     Indication: LUNG NEOPLASM MALIGNANT
     Dosage: 250 MG, 1X/DAY
     Route: 048
     Dates: start: 20130419
  2. XALKORI [Suspect]
     Indication: NON-SMALL CELL LUNG CANCER
     Dosage: 250 MG, 2X/DAY
     Route: 048
     Dates: start: 20130606
  3. XALKORI [Suspect]
     Dosage: 250 MG, 2X/DAY
     Route: 048
     Dates: start: 20130420
  4. VITAMIN C [Concomitant]
     Dosage: 250 MG, 1X/DAY (TAKE 250 MG EVERY DAY)
     Route: 048
  5. FOLATE [Concomitant]
     Dosage: 1 MG, 1X/DAY (TAKE 1 MG EVERY DAY)
     Route: 048
  6. CALCIUM CARBONATE/COLECALCIFEROL [Concomitant]
     Route: 048
  7. GLUTAMINE [Concomitant]
     Dosage: 5 G, 1X/DAY (TAKE EVERY DAY)
     Route: 048
  8. ACETYLSALICYLIC ACID [Concomitant]
     Dosage: 81 MG, 1X/DAY (TAKE EVERY TWENTY-FOUR HOURS)
     Route: 048
  9. FOSINOPRIL [Concomitant]
     Dosage: 40 MG, 1X/DAY (TAKE 40 MOUTH BY MOUTH EVERY DAY)
     Route: 048
  10. QVAR [Concomitant]
     Dosage: 40 UG, 2X/DAY(ACTUATION LNHL AEROSOL, INHALE 1 PUFF BY MOUTH TWICE A DAY)
     Route: 048
  11. ZOCOR [Concomitant]
     Dosage: 10 MG, 1X/DAY (TAKE 10 MG DAILY AT BEDTIME)
     Route: 048
  12. PRILOSEC [Concomitant]
     Dosage: 20 MG, 1X/DAY (TAKE 20 MG EVERY DAY)
     Route: 048
  13. ONE-A-DAY [Concomitant]
     Dosage: 1 DF, 1X/DAY (TAKE 1 TABLET EVERY DAY)
     Route: 048

REACTIONS (5)
  - Visual impairment [Not Recovered/Not Resolved]
  - Dyspepsia [Unknown]
  - Abdominal distension [Unknown]
  - Cough [Not Recovered/Not Resolved]
  - Gastrooesophageal reflux disease [Not Recovered/Not Resolved]
